FAERS Safety Report 12906747 (Version 1)
Quarter: 2016Q4

REPORT INFORMATION
  Report Type: Spontaneous
  Country: US (occurrence: US)
  Receive Date: 20161101
  Receipt Date: 20161101
  Transmission Date: 20170207
  Serious: Yes (Life-Threatening, Hospitalization, Other)
  Sender: FDA-Public Use
  Company Number: None

PATIENT
  Age: 63 Year
  Sex: Female
  Weight: 74.8 kg

DRUGS (1)
  1. REVLIMID [Suspect]
     Active Substance: LENALIDOMIDE
     Indication: PLASMA CELL MYELOMA
     Route: 048
     Dates: start: 20160920, end: 20160927

REACTIONS (15)
  - Oropharyngeal pain [None]
  - Renal failure [None]
  - Pyrexia [None]
  - Back pain [None]
  - Rash [None]
  - Haemodialysis [None]
  - Multi-organ disorder [None]
  - Cytomegalovirus test positive [None]
  - Drug reaction with eosinophilia and systemic symptoms [None]
  - Acute kidney injury [None]
  - Hepatic failure [None]
  - Coagulopathy [None]
  - Encephalopathy [None]
  - Parakeratosis [None]
  - Dyspnoea [None]

NARRATIVE: CASE EVENT DATE: 20160925
